FAERS Safety Report 6613727-8 (Version None)
Quarter: 2010Q1

REPORT INFORMATION
  Report Type: 
  Country: None (occurrence: None)
  Receive Date: 20100225
  Receipt Date: 20090313
  Transmission Date: 20100710
  Serious: Yes (Hospitalization)
  Sender: FDA-Public Use
  Company Number: 621411

PATIENT
  Age: 15 Year
  Sex: Female
  Weight: 41.7 kg

DRUGS (2)
  1. ACCUTANE [Suspect]
     Indication: ACNE
     Dosage: 40 MG DAILY ORAL
     Route: 048
     Dates: start: 19970711, end: 19971211
  2. IBUPROFEN [Concomitant]

REACTIONS (16)
  - BACK PAIN [None]
  - BLOOD TRIGLYCERIDES INCREASED [None]
  - BONE DISORDER [None]
  - CHAPPED LIPS [None]
  - COLITIS ULCERATIVE [None]
  - DEPRESSION [None]
  - DRY SKIN [None]
  - EPISTAXIS [None]
  - HEADACHE [None]
  - INFLAMMATORY BOWEL DISEASE [None]
  - JOINT SPRAIN [None]
  - LIVER FUNCTION TEST ABNORMAL [None]
  - MUSCULOSKELETAL DISORDER [None]
  - NAUSEA [None]
  - NIGHT BLINDNESS [None]
  - VISUAL IMPAIRMENT [None]
